FAERS Safety Report 10897657 (Version 1)
Quarter: 2015Q1

REPORT INFORMATION
  Report Type: Spontaneous
  Country: US (occurrence: None)
  Receive Date: 20150302
  Receipt Date: 20150302
  Transmission Date: 20150721
  Serious: Yes (Hospitalization)
  Sender: FDA-Public Use
  Company Number: None

PATIENT
  Age: 74 Year
  Sex: Male
  Weight: 63.5 kg

DRUGS (2)
  1. ETOPOSIDE (VP-16) [Suspect]
     Active Substance: ETOPOSIDE
     Dates: end: 20140619
  2. CISPLATIN. [Suspect]
     Active Substance: CISPLATIN
     Dates: end: 20140617

REACTIONS (9)
  - Hip fracture [None]
  - Cardiac arrest [None]
  - Lung neoplasm malignant [None]
  - Aortic aneurysm [None]
  - Urinary tract infection [None]
  - Fatigue [None]
  - Device related infection [None]
  - Respiratory failure [None]
  - Weight decreased [None]

NARRATIVE: CASE EVENT DATE: 20141222
